FAERS Safety Report 4592223-6 (Version None)
Quarter: 2005Q1

REPORT INFORMATION
  Report Type: 
  Country: None (occurrence: None)
  Receive Date: 20050228
  Receipt Date: 20040809
  Transmission Date: 20050727
  Serious: No
  Sender: FDA-Public Use
  Company Number: US-BRISTOL-MYERS SQUIBB COMPANY-12664843

PATIENT
  Age: 47 Year
  Sex: Male
  Weight: 88 kg

DRUGS (14)
  1. ABILIFY [Suspect]
     Indication: SCHIZOPHRENIA, PARANOID TYPE
     Dosage: 30 MG/DAY FROM JUL-03 TO AUG-03.  RESTARTED @ 15 MG/DAY IN AUG-2004.
     Route: 048
     Dates: start: 20030701
  2. SEROQUEL [Concomitant]
  3. BUSPAR [Concomitant]
  4. ARTANE [Concomitant]
  5. GLUCOVANCE [Concomitant]
  6. PROZAC [Concomitant]
  7. VALIUM [Concomitant]
  8. NEXIUM [Concomitant]
  9. LITHIUM [Concomitant]
  10. VICODIN [Concomitant]
  11. CRESTOR [Concomitant]
  12. ULTRAM [Concomitant]
  13. TYLENOL W/ CODEINE NO. 4 [Concomitant]
  14. PREVACID [Concomitant]

REACTIONS (7)
  - ASTHENIA [None]
  - MEMORY IMPAIRMENT [None]
  - NAUSEA [None]
  - NERVOUSNESS [None]
  - PAIN [None]
  - RESTLESSNESS [None]
  - WEIGHT DECREASED [None]
